FAERS Safety Report 7007830-0 (Version None)
Quarter: 2010Q3

REPORT INFORMATION
  Report Type: 
  Country: None (occurrence: None)
  Receive Date: 20100922
  Receipt Date: 20100915
  Transmission Date: 20110219
  Serious: Yes (Other)
  Sender: FDA-Public Use
  Company Number: US-MERCK-1009USA03315

PATIENT
  Age: 75 Year
  Sex: Male

DRUGS (5)
  1. SINEMET [Suspect]
     Route: 048
  2. SINEMET [Suspect]
     Route: 048
  3. UBIDECARENONE [Concomitant]
     Route: 065
  4. NORVASC [Concomitant]
     Route: 065
  5. LISINOPRIL [Concomitant]
     Route: 065

REACTIONS (2)
  - HAEMOGLOBIN DECREASED [None]
  - PARKINSON'S DISEASE [None]
